FAERS Safety Report 4440744-9 (Version None)
Quarter: 2004Q3

REPORT INFORMATION
  Report Type: 
  Country: None (occurrence: None)
  Receive Date: 20040728
  Receipt Date: 20040311
  Transmission Date: 20050211
  Serious: No
  Sender: FDA-Public Use
  Company Number: USA040361768

PATIENT
  Age: 11 Year
  Sex: Male
  Weight: 38 kg

DRUGS (5)
  1. STRATTERA [Suspect]
     Indication: ATTENTION DEFICIT/HYPERACTIVITY DISORDER
     Dosage: 40 MG DAY
     Dates: start: 20031001
  2. SINGULAIR [Concomitant]
  3. VITAMINS NOS [Concomitant]
  4. METADATE (METHYLPHENIDATE) [Concomitant]
  5. METHYLPHENIDATE HCL [Concomitant]

REACTIONS (4)
  - FATIGUE [None]
  - IRRITABILITY [None]
  - RESPIRATORY TRACT INFECTION [None]
  - RETCHING [None]
